FAERS Safety Report 9124599 (Version 1)
Quarter: 2013Q1

REPORT INFORMATION
  Report Type: Spontaneous
  Country: CA (occurrence: CA)
  Receive Date: 20130116
  Receipt Date: 20130116
  Transmission Date: 20140127
  Serious: Yes (Other)
  Sender: FDA-Public Use
  Company Number: CA-ABBOTT-12P-028-1026206-00

PATIENT
  Sex: Female
  Weight: 31.37 kg

DRUGS (3)
  1. LUPRON DEPOT [Suspect]
     Indication: HORMONE SUPPRESSION THERAPY
     Route: 030
     Dates: start: 20120814, end: 20120814
  2. LUPRON DEPOT [Suspect]
     Route: 030
     Dates: start: 20120913
  3. TRI CYCLEN [Concomitant]
     Indication: PRODUCT USED FOR UNKNOWN INDICATION
     Dates: start: 20121105, end: 20121126

REACTIONS (4)
  - Endometriosis [Unknown]
  - Adenomyosis [Unknown]
  - Drug ineffective [Not Recovered/Not Resolved]
  - Dysfunctional uterine bleeding [Not Recovered/Not Resolved]
